FAERS Safety Report 9125374 (Version 1)
Quarter: 2013Q1

REPORT INFORMATION
  Report Type: Spontaneous
  Country: US (occurrence: US)
  Receive Date: 20130121
  Receipt Date: 20130121
  Transmission Date: 20140127
  Serious: Yes (Hospitalization, Other)
  Sender: FDA-Public Use
  Company Number: US-ELI_LILLY_AND_COMPANY-US201301002515

PATIENT
  Age: 64 None
  Sex: Male
  Weight: 145.13 kg

DRUGS (5)
  1. BYETTA [Suspect]
     Dosage: 10 UG, BID
     Route: 058
  2. BYETTA [Suspect]
     Dosage: 10 UG, QD
     Route: 058
  3. METFORMIN [Concomitant]
     Indication: TYPE 2 DIABETES MELLITUS
     Dosage: 1000 MG, EACH MORNING
     Route: 048
  4. METFORMIN [Concomitant]
     Dosage: 500 MG, EACH EVENING
     Route: 048
  5. BYETTA [Suspect]
     Indication: TYPE 2 DIABETES MELLITUS
     Dosage: 5 UG, BID
     Route: 058

REACTIONS (11)
  - Lymphoma [Not Recovered/Not Resolved]
  - Abdominal pain upper [Recovered/Resolved]
  - Gastroenteritis viral [Recovered/Resolved]
  - Presyncope [Recovered/Resolved]
  - Weight decreased [Unknown]
  - Decreased appetite [Not Recovered/Not Resolved]
  - Diarrhoea [Recovered/Resolved]
  - Vomiting [Recovered/Resolved]
  - Hyperhidrosis [Recovered/Resolved]
  - Inappropriate schedule of drug administration [Not Recovered/Not Resolved]
  - Drug dose omission [Unknown]
